FAERS Safety Report 8174137-8 (Version None)
Quarter: 2012Q1

REPORT INFORMATION
  Report Type: 
  Country: None (occurrence: None)
  Receive Date: 20120229
  Receipt Date: 20120217
  Transmission Date: 20120608
  Serious: Yes (Hospitalization)
  Sender: FDA-Public Use
  Company Number: JP-UCBSA-050529

PATIENT
  Age: 28 Year
  Sex: Female
  Weight: 33.9 kg

DRUGS (6)
  1. PHENOBARBITAL TAB [Suspect]
     Dosage: DAILY DOSE: 5 MG
     Route: 048
     Dates: start: 20110729, end: 20110815
  2. LAMICTAL [Suspect]
     Dosage: DAILY DOSE: 150 MG
     Route: 048
     Dates: start: 20110506
  3. KEPPRA [Suspect]
     Indication: EPILEPSY
     Route: 048
     Dates: start: 20110513
  4. PHENYTOIN SODIUM CAP [Suspect]
     Dosage: DAILY DOSE: 200 MG
     Route: 048
     Dates: start: 20110530, end: 20110613
  5. PHENOBARBITAL TAB [Suspect]
     Dosage: DAILY DOSE: 30 MG
     Route: 048
     Dates: end: 20110728
  6. PHENYTOIN SODIUM CAP [Suspect]
     Dosage: DAILY DOSE: 100 MG
     Route: 048
     Dates: start: 20110613, end: 20110619

REACTIONS (2)
  - ALTERED STATE OF CONSCIOUSNESS [None]
  - COGNITIVE DISORDER [None]
